FAERS Safety Report 15854125 (Version 1)
Quarter: 2019Q1

REPORT INFORMATION
  Report Type: Spontaneous
  Country: US (occurrence: US)
  Receive Date: 20190121
  Receipt Date: 20190121
  Transmission Date: 20190417
  Serious: Yes (Other)
  Sender: FDA-Public Use
  Company Number: None

PATIENT
  Age: 47 Year
  Sex: Female
  Weight: 60.75 kg

DRUGS (4)
  1. PREDNISONE. [Concomitant]
     Active Substance: PREDNISONE
  2. BENADRYL [Concomitant]
     Active Substance: DIPHENHYDRAMINE HYDROCHLORIDE
  3. REMICADE [Suspect]
     Active Substance: INFLIXIMAB
     Indication: CROHN^S DISEASE
     Dosage: ?          OTHER ROUTE:INFUSION IV?
     Dates: start: 20190111, end: 20190111
  4. MULTI VITAMEN [Concomitant]

REACTIONS (5)
  - Flushing [None]
  - Pain in jaw [None]
  - Swelling face [None]
  - Myalgia [None]
  - Peripheral swelling [None]

NARRATIVE: CASE EVENT DATE: 20190119
